FAERS Safety Report 15612622 (Version 1)
Quarter: 2018Q4

REPORT INFORMATION
  Report Type: Spontaneous
  Country: JP (occurrence: JP)
  Receive Date: 20181113
  Receipt Date: 20181113
  Transmission Date: 20190205
  Serious: Yes (Other)
  Sender: FDA-Public Use
  Company Number: PHJP2018JP013177

PATIENT
  Age: 43 Year

DRUGS (1)
  1. RITALIN [Suspect]
     Active Substance: METHYLPHENIDATE HYDROCHLORIDE
     Indication: INSOMNIA
     Dosage: UNK
     Route: 048
     Dates: start: 201003

REACTIONS (16)
  - Drug dependence [Unknown]
  - Memory impairment [Unknown]
  - Encopresis [Unknown]
  - Hallucination [Unknown]
  - Drug abuse [Unknown]
  - Syncope [Unknown]
  - Delusion [Unknown]
  - Intentional overdose [Unknown]
  - Agitation [Unknown]
  - Incontinence [Unknown]
  - Schizophreniform disorder [Unknown]
  - Abnormal behaviour [Unknown]
  - Personality change [Unknown]
  - Confusional state [Unknown]
  - Hallucination, auditory [Unknown]
  - Mania [Unknown]

NARRATIVE: CASE EVENT DATE: 201109
